FAERS Safety Report 5853462-7 (Version None)
Quarter: 2008Q3

REPORT INFORMATION
  Report Type: 
  Country: None (occurrence: None)
  Receive Date: 20080820
  Receipt Date: 20080805
  Transmission Date: 20090109
  Serious: Yes (Hospitalization)
  Sender: FDA-Public Use
  Company Number: 2008-181719-NL

PATIENT
  Age: 89 Year
  Sex: Female

DRUGS (6)
  1. MIRTAZAPINE [Suspect]
     Indication: ANXIETY
     Dosage: 30 MG QD, ORAL
     Route: 048
     Dates: start: 20060101, end: 20080519
  2. MIRTAZAPINE [Suspect]
     Indication: DEPRESSION
     Dosage: 30 MG QD, ORAL
     Route: 048
     Dates: start: 20060101, end: 20080519
  3. ENALAPRIL MALEATE [Suspect]
     Indication: HYPERTENSION
     Dosage: 5 MG QD ORAL
     Route: 048
     Dates: start: 20040101, end: 20080519
  4. SERTRALINE HYDROCHLORIDE [Suspect]
     Indication: DEPRESSION
     Dosage: 50 MG QD ORAL
     Route: 048
     Dates: start: 20070101, end: 20080519
  5. LACTITOL [Concomitant]
     Indication: ANXIETY
  6. DURAPATITE [Concomitant]

REACTIONS (6)
  - ANAEMIA OF CHRONIC DISEASE [None]
  - BRONCHOSPASM [None]
  - HYPERCAPNIA [None]
  - HYPERKALAEMIA [None]
  - HYPONATRAEMIA [None]
  - HYPOXIA [None]
